FAERS Safety Report 8132737-5 (Version None)
Quarter: 2012Q1

REPORT INFORMATION
  Report Type: 
  Country: None (occurrence: None)
  Receive Date: 20120103
  Receipt Date: 20111115
  Transmission Date: 20120608
  Serious: No
  Sender: FDA-Public Use
  Company Number: AE-2011-003512

PATIENT
  Age: 55 Year
  Sex: Male
  Weight: 107.5025 kg

DRUGS (6)
  1. INCIVEK [Suspect]
     Dates: start: 20111025, end: 20111115
  2. METAMUCIL-2 [Concomitant]
  3. PEGASYS (PEGINTERFEORN ALFA-2A) [Concomitant]
  4. RIBAVIRIN [Concomitant]
  5. LOMOTIL [Concomitant]
  6. PRILOSEC [Concomitant]

REACTIONS (1)
  - DIARRHOEA [None]
